FAERS Safety Report 26071467 (Version 1)
Quarter: 2025Q4

REPORT INFORMATION
  Report Type: Spontaneous
  Country: US (occurrence: US)
  Receive Date: 20251120
  Receipt Date: 20251120
  Transmission Date: 20260118
  Serious: Yes (Other)
  Sender: BAYER HEALTHCARE PHARMACEUTICALS INC.
  Company Number: US-BAYER-2025A153684

PATIENT
  Age: 28 Year
  Sex: Male

DRUGS (4)
  1. KOVALTRY [Suspect]
     Active Substance: ANTIHEMOPHILIC FACTOR, HUMAN RECOMBINANT
     Indication: Factor VIII deficiency
     Dosage: 2100 U, KOVALTRY 2000 IU: INFUSE~2100 UNITS
     Route: 042
     Dates: start: 202304
  2. KOVALTRY [Suspect]
     Active Substance: ANTIHEMOPHILIC FACTOR, HUMAN RECOMBINANT
     Indication: Factor VIII deficiency
     Dosage: 2100 U, KOVALTRY 2000 IU: INFUSE~2100 UNITS
     Route: 042
     Dates: start: 202304
  3. KOVALTRY [Suspect]
     Active Substance: ANTIHEMOPHILIC FACTOR, HUMAN RECOMBINANT
     Indication: Factor VIII deficiency
     Dosage: 2 DF, BEFORE CLEANING
     Route: 042
  4. KOVALTRY [Suspect]
     Active Substance: ANTIHEMOPHILIC FACTOR, HUMAN RECOMBINANT
     Indication: Factor VIII deficiency
     Dosage: 2 DF, AFTER CLEANING
     Route: 042
     Dates: start: 202511, end: 202511

REACTIONS (2)
  - Gingival bleeding [None]
  - Dental cleaning [None]

NARRATIVE: CASE EVENT DATE: 20251111
